FAERS Safety Report 11242619 (Version 1)
Quarter: 2015Q3

REPORT INFORMATION
  Report Type: Spontaneous
  Country: US (occurrence: US)
  Receive Date: 20150707
  Receipt Date: 20150707
  Transmission Date: 20151125
  Serious: No
  Sender: FDA-Public Use
  Company Number: US-009507513-1507USA000302

PATIENT
  Sex: Female

DRUGS (5)
  1. METFORMIN [Suspect]
     Active Substance: METFORMIN HYDROCHLORIDE
     Dosage: UNK
  2. VITAMINS (UNSPECIFIED) [Concomitant]
     Active Substance: VITAMINS
     Dosage: UNK
  3. JANUVIA [Suspect]
     Active Substance: SITAGLIPTIN PHOSPHATE
     Dosage: 100 MG ONCE DAILY
     Route: 048
     Dates: start: 2014
  4. IBUPROFEN. [Concomitant]
     Active Substance: IBUPROFEN
     Dosage: UNK
  5. JANUVIA [Suspect]
     Active Substance: SITAGLIPTIN PHOSPHATE
     Dosage: 100 MG ONCE DAILY
     Route: 048
     Dates: start: 2011

REACTIONS (8)
  - Fungal infection [Unknown]
  - Asthenia [Unknown]
  - Nausea [Unknown]
  - Pruritus [Unknown]
  - Heart rate increased [Unknown]
  - Vomiting [Unknown]
  - Dizziness [Unknown]
  - Rash generalised [Not Recovered/Not Resolved]
